FAERS Safety Report 5833011-X (Version None)
Quarter: 2008Q3

REPORT INFORMATION
  Report Type: 
  Country: None (occurrence: None)
  Receive Date: 20080805
  Receipt Date: 20080723
  Transmission Date: 20090109
  Serious: Yes (Hospitalization, Other)
  Sender: FDA-Public Use
  Company Number: TR-RANBAXY-2008RR-16630

PATIENT

DRUGS (11)
  1. FLUCONAZOLE 50MG CAPSULES [Suspect]
     Indication: FUNGAL INFECTION
     Dosage: 3 MG/KG, QD
  2. TRETINOIN [Suspect]
     Indication: ACUTE PROMYELOCYTIC LEUKAEMIA
     Dosage: 45 MG/M2, QD
  3. TRETINOIN [Suspect]
     Dosage: 25 MG/M2, QD
     Route: 048
  4. CEFEPIME [Concomitant]
     Indication: PNEUMONIA
  5. AMIKACIN [Concomitant]
     Indication: PNEUMONIA
  6. MEROPENEM [Concomitant]
     Indication: PNEUMONIA
  7. IDARUBICIN HCL [Concomitant]
     Dosage: 48 MG/M2, UNK
     Route: 042
  8. CYTARABINE [Concomitant]
  9. MITOXANTRONE [Concomitant]
  10. ETOPOSIDE [Concomitant]
  11. THIOGUANINE [Concomitant]

REACTIONS (2)
  - DRUG INTERACTION [None]
  - RENAL FAILURE ACUTE [None]
